FAERS Safety Report 18893664 (Version 1)
Quarter: 2021Q1

REPORT INFORMATION
  Report Type: Spontaneous
  Country: NL (occurrence: NL)
  Receive Date: 20210215
  Receipt Date: 20210215
  Transmission Date: 20210420
  Serious: Yes (Hospitalization)
  Sender: FDA-Public Use
  Company Number: NL-TEVA-2021-NL-1879053

PATIENT
  Sex: Female

DRUGS (4)
  1. NAPROXEN TABLET 500MG / BRAND NAME NOT SPECIFIED [Suspect]
     Active Substance: NAPROXEN
     Indication: INFLAMMATION
     Dosage: 1000 MILLIGRAM DAILY; 2X DAILY 1 PIECE
     Dates: start: 20201207, end: 20201209
  2. BISOPROLOL TABLET  10MG / BRAND NAME NOT SPECIFIED [Concomitant]
     Dosage: 10 MG (MILLIGRAM)THERAPY START DATE:ASKED BUT UNKNOWN:THERAPY END DATE :ASKED BUT UNKNOWN
  3. FOSINOPRIL TABLET 20MG / BRAND NAME NOT SPECIFIED [Concomitant]
     Dosage: 20 MG (MILLIGRAM)THERAPY START DATE:ASKED BUT UNKNOWN:THERAPY END DATE :ASKED BUT UNKNOWN
  4. BUMETANIDE TABLET 1MG / BRAND NAME NOT SPECIFIED [Concomitant]
     Dosage: 1 MG (MILLIGRAM)THERAPY START DATE:ASKED BUT UNKNOWN:THERAPY END DATE :ASKED BUT UNKNOWN

REACTIONS (4)
  - Pharyngeal swelling [Recovered/Resolved]
  - Angioedema [Recovered/Resolved]
  - Swollen tongue [Recovered/Resolved]
  - Pruritus [Recovered/Resolved]
